FAERS Safety Report 9392954 (Version 3)
Quarter: 2013Q4

REPORT INFORMATION
  Report Type: Spontaneous
  Country: BR (occurrence: BR)
  Receive Date: 20130710
  Receipt Date: 20131104
  Transmission Date: 20140711
  Serious: Yes (Other)
  Sender: FDA-Public Use
  Company Number: BR-NOVOPROD-379529

PATIENT
  Age: 64 Year
  Sex: Female
  Weight: 70 kg

DRUGS (6)
  1. VICTOZA [Suspect]
     Indication: TYPE 2 DIABETES MELLITUS
     Dosage: 0.6 MG, QD
     Route: 058
     Dates: start: 201205
  2. VICTOZA [Suspect]
     Dosage: UNK
     Route: 058
  3. ENALAPRIL /00574902/ [Suspect]
     Indication: HYPERTENSION
     Dosage: 2 TAB, QD
     Route: 048
  4. GLIFAGE [Suspect]
     Indication: TYPE 2 DIABETES MELLITUS
     Dosage: 4 TAB, QD
     Route: 048
     Dates: start: 2012
  5. ANASTROZOLE [Suspect]
     Indication: BREAST CANCER
     Dosage: 1 TAB, QD
     Route: 048
     Dates: start: 2011
  6. DIAMICRON [Concomitant]
     Indication: TYPE 2 DIABETES MELLITUS
     Dosage: 2 TAB, QD
     Route: 048

REACTIONS (5)
  - Breast cancer recurrent [Unknown]
  - Device leakage [Unknown]
  - Blood glucose increased [Not Recovered/Not Resolved]
  - Device issue [Unknown]
  - Product quality issue [Unknown]
